FAERS Safety Report 7522047-9 (Version None)
Quarter: 2011Q2

REPORT INFORMATION
  Report Type: 
  Country: None (occurrence: None)
  Receive Date: 20110603
  Receipt Date: 20110520
  Transmission Date: 20111010
  Serious: Yes (Hospitalization)
  Sender: FDA-Public Use
  Company Number: CA-JNJFOC-20110505230

PATIENT
  Sex: Female
  Weight: 88 kg

DRUGS (9)
  1. M.V.I. [Concomitant]
  2. LEVOTHYROXINE SODIUM [Concomitant]
  3. REMICADE [Suspect]
     Indication: COLITIS ULCERATIVE
     Dosage: 18 INFUSIONS TO DATE
     Route: 042
     Dates: start: 20090527
  4. LEVOFLOXACIN [Concomitant]
  5. TYLENOL-500 [Concomitant]
  6. COMBIVENT [Concomitant]
  7. PANTOPRAZOLE SODIUM [Concomitant]
  8. FOLIC ACID [Concomitant]
  9. SOLU-MEDROL [Concomitant]
     Route: 042

REACTIONS (5)
  - PNEUMONIA [None]
  - SYSTEMIC LUPUS ERYTHEMATOSUS [None]
  - PLEURAL EFFUSION [None]
  - PERICARDIAL EFFUSION [None]
  - HAEMOGLOBIN DECREASED [None]
